FAERS Safety Report 4883125-6 (Version None)
Quarter: 2006Q1

REPORT INFORMATION
  Report Type: 
  Country: None (occurrence: None)
  Receive Date: 20060117
  Receipt Date: 20060117
  Transmission Date: 20060701
  Serious: Yes (Hospitalization)
  Sender: FDA-Public Use
  Company Number: None

PATIENT
  Sex: Male
  Weight: 58.6 kg

DRUGS (1)
  1. WARFARIN    5MG [Suspect]
     Indication: ATRIAL FIBRILLATION
     Dosage: 5MG  M, W,  F + 2.5MG DAILY X 4  QD  PO
     Route: 048
     Dates: start: 20051005, end: 20051019

REACTIONS (3)
  - CONDITION AGGRAVATED [None]
  - EPISTAXIS [None]
  - THERAPEUTIC RESPONSE DECREASED [None]
